FAERS Safety Report 5500248-9 (Version None)
Quarter: 2007Q4

REPORT INFORMATION
  Report Type: 
  Country: None (occurrence: None)
  Receive Date: 20071025
  Receipt Date: 20071009
  Transmission Date: 20080405
  Serious: Yes (Hospitalization)
  Sender: FDA-Public Use
  Company Number: S07-GER-05543-01

PATIENT
  Age: 75 Year
  Sex: Female

DRUGS (6)
  1. CITALOPRAM HYDROBROMIDE [Suspect]
     Dosage: 20 MG ONCE PO
     Route: 048
  2. TRIMIPRAMIN (TRIMIPRAMINE) [Concomitant]
  3. METOPROLOL SUCCINATE [Concomitant]
  4. ATACAND [Concomitant]
  5. RAMIPRIL [Concomitant]
  6. AMILOCOMP (AMILORIDE/HYDROCHLOROTHIAZIDE) [Concomitant]

REACTIONS (11)
  - BLOOD SODIUM DECREASED [None]
  - CARDIAC FAILURE [None]
  - CONVULSION [None]
  - DEHYDRATION [None]
  - DEPRESSED LEVEL OF CONSCIOUSNESS [None]
  - DIARRHOEA [None]
  - DIZZINESS [None]
  - GASTROENTERITIS [None]
  - HYPONATRAEMIA [None]
  - OEDEMA [None]
  - VOMITING [None]
